FAERS Safety Report 7554541-9 (Version None)
Quarter: 2011Q2

REPORT INFORMATION
  Report Type: 
  Country: None (occurrence: None)
  Receive Date: 20110617
  Receipt Date: 20110613
  Transmission Date: 20111010
  Serious: Yes (Hospitalization)
  Sender: FDA-Public Use
  Company Number: ES-SANOFI-AVENTIS-2011SA037294

PATIENT
  Age: 85 Year
  Sex: Male

DRUGS (13)
  1. BEVACIZUMAB [Suspect]
     Dosage: 1X PER 21 DAY
     Route: 042
     Dates: start: 20110504
  2. TENORMIN [Concomitant]
  3. OXALIPLATIN [Suspect]
     Dosage: 1X PER 21 DAYS
     Route: 042
     Dates: start: 20110504
  4. ENALAPRIL MALEATE [Concomitant]
  5. ALPRAZOLAM [Concomitant]
  6. DEXAMETHASONE [Suspect]
     Route: 065
  7. FERROUS SULFATE TAB [Concomitant]
  8. LANSOPRAZOLE [Concomitant]
  9. OXALIPLATIN [Suspect]
     Dosage: 1X PER 21 DAY
     Route: 042
  10. BEVACIZUMAB [Suspect]
     Dosage: 1X PER 21 DAYS
     Route: 042
  11. LORMETAZEPAM [Concomitant]
  12. CAPECITABINE [Suspect]
     Dosage: FREQUENCY: DAY 1-15
     Route: 048
     Dates: start: 20110504, end: 20110530
  13. DUTASTERIDE [Concomitant]

REACTIONS (1)
  - CONFUSIONAL STATE [None]
